FAERS Safety Report 15957450 (Version 1)
Quarter: 2019Q1

REPORT INFORMATION
  Report Type: Spontaneous
  Country: GB (occurrence: GB)
  Receive Date: 20190213
  Receipt Date: 20190213
  Transmission Date: 20190417
  Serious: Yes (Hospitalization)
  Sender: FDA-Public Use
  Company Number: GB-PFIZER INC-2019057691

PATIENT
  Age: 25 Year
  Sex: Male
  Weight: 115 kg

DRUGS (1)
  1. ZOLOFT [Suspect]
     Active Substance: SERTRALINE HYDROCHLORIDE
     Indication: MAJOR DEPRESSION
     Dosage: UNK UNK, 3X/DAY
     Route: 048
     Dates: start: 20170920

REACTIONS (9)
  - Abnormal weight gain [Unknown]
  - Depressed mood [Unknown]
  - Apathy [Unknown]
  - Confusional state [Unknown]
  - Restlessness [Unknown]
  - Psychotic disorder [Not Recovered/Not Resolved]
  - Hallucination, auditory [Unknown]
  - Amnesia [Unknown]
  - Schizophreniform disorder [Unknown]

NARRATIVE: CASE EVENT DATE: 20180830
